FAERS Safety Report 9187618 (Version 2)
Quarter: 2013Q2

REPORT INFORMATION
  Report Type: Spontaneous
  Country: JP (occurrence: JP)
  Receive Date: 20130325
  Receipt Date: 20130418
  Transmission Date: 20140414
  Serious: Yes (Hospitalization, Other)
  Sender: FDA-Public Use
  Company Number: PHHY2013JP026657

PATIENT
  Age: 45 Year
  Sex: Male
  Weight: 58.8 kg

DRUGS (2)
  1. VORICONAZOLE [Suspect]
     Indication: FUNGAL INFECTION
     Dosage: 400 MG
     Route: 048
  2. BORTEZOMIB [Interacting]
     Dates: start: 200811

REACTIONS (4)
  - Ileus paralytic [Recovered/Resolved]
  - Abdominal distension [Recovered/Resolved]
  - Drug interaction [Unknown]
  - Neuropathy peripheral [Recovered/Resolved]
